FAERS Safety Report 24178324 (Version 3)
Quarter: 2024Q3

REPORT INFORMATION
  Report Type: Spontaneous
  Country: US (occurrence: US)
  Receive Date: 20240806
  Receipt Date: 20240905
  Transmission Date: 20241016
  Serious: Yes (Other)
  Sender: CSL BEHRING
  Company Number: US-BEH-2024176556

PATIENT
  Sex: Female

DRUGS (25)
  1. HIZENTRA [Suspect]
     Active Substance: HUMAN IMMUNOGLOBULIN G
     Indication: Immunodeficiency common variable
     Dosage: 10 G (50ML), QW
     Route: 058
     Dates: start: 20240416
  2. ACETAMINOPHEN [Concomitant]
     Active Substance: ACETAMINOPHEN
  3. ACTEMRA [Concomitant]
     Active Substance: TOCILIZUMAB
  4. ACTEMRA [Concomitant]
     Active Substance: TOCILIZUMAB
  5. ALPRAZOLAM [Concomitant]
     Active Substance: ALPRAZOLAM
  6. BUPRENORPHINE [Concomitant]
     Active Substance: BUPRENORPHINE
  7. BUPRENORPHINE [Concomitant]
     Active Substance: BUPRENORPHINE
  8. CYCLOBENZAPRINE [Concomitant]
     Active Substance: CYCLOBENZAPRINE
  9. CYCLOPENTOL [Concomitant]
  10. DEXAMETHASONE [Concomitant]
     Active Substance: DEXAMETHASONE
  11. ERYTHROMYCIN [Concomitant]
     Active Substance: ERYTHROMYCIN
  12. FLUCELVAX NOS [Concomitant]
     Active Substance: INFLUENZA A VIRUS A/BRISBANE/10/2010 (H1N1) ANTIGEN (MDCK CELL DERIVED, PROPIOLACTONE INACTIVATED)\I
  13. MEDROXYPROGESTERONE [Concomitant]
     Active Substance: MEDROXYPROGESTERONE
  14. NALOXONE HYDROCHLORIDE [Concomitant]
     Active Substance: NALOXONE HYDROCHLORIDE
  15. ONDANSETRON [Concomitant]
     Active Substance: ONDANSETRON
  16. OSELTAMIVIR [Concomitant]
     Active Substance: OSELTAMIVIR
  17. OXYCODONE [Concomitant]
     Active Substance: OXYCODONE
  18. OXYCODONE [Concomitant]
     Active Substance: OXYCODONE
  19. PREDNISOLONE [Concomitant]
     Active Substance: PREDNISOLONE
  20. PREDNISONE [Concomitant]
     Active Substance: PREDNISONE
  21. TIZANIDINE [Concomitant]
     Active Substance: TIZANIDINE
  22. TIZANIDINE [Concomitant]
     Active Substance: TIZANIDINE
  23. TRETINOIN [Concomitant]
     Active Substance: TRETINOIN
  24. XANAX [Concomitant]
     Active Substance: ALPRAZOLAM
  25. ZOFRAN [Concomitant]
     Active Substance: ONDANSETRON HYDROCHLORIDE

REACTIONS (9)
  - Drug ineffective [Unknown]
  - Respiratory tract infection viral [Unknown]
  - Oropharyngeal pain [Recovered/Resolved]
  - Pain [Recovered/Resolved]
  - Pyrexia [Recovered/Resolved]
  - Illness [Recovered/Resolved]
  - Loss of personal independence in daily activities [Recovered/Resolved]
  - Product dose omission issue [Unknown]
  - Therapy interrupted [Unknown]

NARRATIVE: CASE EVENT DATE: 20240101
